FAERS Safety Report 21057191 (Version 1)
Quarter: 2022Q3

REPORT INFORMATION
  Report Type: Spontaneous
  Country: US (occurrence: None)
  Receive Date: 20220707
  Receipt Date: 20220707
  Transmission Date: 20221027
  Serious: Yes (Disabling, Other)
  Sender: FDA-Public Use
  Company Number: None

PATIENT
  Sex: Female

DRUGS (11)
  1. CIPRO [Suspect]
     Active Substance: CIPROFLOXACIN HYDROCHLORIDE
     Indication: Urinary tract infection
  2. LOSARTIN [Concomitant]
  3. Vitamins Fish oil [Concomitant]
  4. GLUCOSAMINE [Concomitant]
  5. Vit E [Concomitant]
  6. VITAMIN D NOS [Concomitant]
     Active Substance: VITAMIN D NOS
  7. Omeprezol [Concomitant]
  8. BABY ASPIRIN [Concomitant]
  9. Allergy med [Concomitant]
  10. Statin [Concomitant]
  11. GABAPENTIN [Concomitant]
     Active Substance: GABAPENTIN

REACTIONS (3)
  - Pain [None]
  - Nervous system disorder [None]
  - Blood glucose abnormal [None]
